FAERS Safety Report 9995892 (Version 1)
Quarter: 2014Q1

REPORT INFORMATION
  Report Type: Spontaneous
  Country: US (occurrence: None)
  Receive Date: 20140218
  Receipt Date: 20140218
  Transmission Date: 20141002
  Serious: No
  Sender: FDA-Public Use
  Company Number: 1000052858

PATIENT
  Age: 42 Year
  Sex: Female

DRUGS (3)
  1. VIIBRYD [Suspect]
     Indication: DEPRESSION
     Route: 048
  2. VIIBRYD [Suspect]
     Indication: ANXIETY
     Route: 048
  3. KLONOPIN (CLONAZEPAM) (CLONAZEPAM) [Concomitant]

REACTIONS (3)
  - Insomnia [None]
  - Anxiety [None]
  - Off label use [None]
